FAERS Safety Report 13294497 (Version 1)
Quarter: 2017Q1

REPORT INFORMATION
  Report Type: Spontaneous
  Country: FR (occurrence: FR)
  Receive Date: 20170303
  Receipt Date: 20170303
  Transmission Date: 20170428
  Serious: Yes (Hospitalization)
  Sender: FDA-Public Use
  Company Number: FR-009507513-1702FRA010468

PATIENT
  Sex: Male

DRUGS (14)
  1. TEMODAL [Suspect]
     Active Substance: TEMOZOLOMIDE
     Indication: ASTROCYTOMA
     Dosage: 140 M QD
     Route: 048
     Dates: end: 20170105
  2. ALBUTEROL. [Suspect]
     Active Substance: ALBUTEROL
     Dosage: UNK
     Route: 055
     Dates: start: 20170128, end: 20170201
  3. ROVAMYCINE [Suspect]
     Active Substance: SPIRAMYCIN
     Indication: PLEURISY
     Dosage: 1.5 MILLION IU, TID
     Route: 042
     Dates: start: 20170128, end: 20170201
  4. ESOMEPRAZOLE MAGNESIUM. [Concomitant]
     Active Substance: ESOMEPRAZOLE MAGNESIUM
     Dosage: UNK
     Route: 048
  5. DIFFU-K [Suspect]
     Active Substance: POTASSIUM CHLORIDE
     Dosage: 1 DF, QD
     Route: 048
     Dates: end: 20170201
  6. URBANYL [Concomitant]
     Active Substance: CLOBAZAM
     Dosage: 1 DF, QD
     Route: 048
  7. LAMALINE [Concomitant]
     Active Substance: ACETAMINOPHEN\CAFFEINE\OPIUM
     Dosage: 2 DF, TID
     Route: 048
     Dates: end: 20170201
  8. AUGMENTIN [Concomitant]
     Active Substance: AMOXICILLIN\CLAVULANATE POTASSIUM
     Dosage: 3 G, (1G TID)
     Dates: start: 20170128
  9. IPRATROPIUM BROMIDE. [Suspect]
     Active Substance: IPRATROPIUM BROMIDE
     Dosage: UNK
     Route: 055
     Dates: start: 20170128, end: 20170201
  10. LYRICA [Concomitant]
     Active Substance: PREGABALIN
     Dosage: 100 MG, QD
     Route: 048
  11. ZEBINIX [Concomitant]
     Active Substance: ESLICARBAZEPINE ACETATE
     Dosage: 1.5 DF, QD
     Route: 048
  12. SOLUPRED [Suspect]
     Active Substance: PREDNISOLONE
     Dosage: 40 MG, QD
     Route: 048
     Dates: start: 20170128
  13. KEPPRA [Concomitant]
     Active Substance: LEVETIRACETAM
     Dosage: 1000 MG, BID
     Route: 048
  14. OFLOCET (OFLOXACIN HYDROCHLORIDE) [Concomitant]
     Active Substance: OFLOXACIN
     Dosage: 1 DF, BID IN EAR (STAENGTH: 1.5MG/0.5ML)
     Dates: start: 20170128

REACTIONS (2)
  - Cell death [Recovered/Resolved]
  - Cholestasis [Not Recovered/Not Resolved]
